FAERS Safety Report 6524594-5 (Version None)
Quarter: 2010Q1

REPORT INFORMATION
  Report Type: 
  Country: None (occurrence: None)
  Receive Date: 20100104
  Receipt Date: 20091223
  Transmission Date: 20100710
  Serious: Yes (Disabling)
  Sender: FDA-Public Use
  Company Number: PHHY2009IT58417

PATIENT
  Sex: Female

DRUGS (5)
  1. ZOMETA [Suspect]
     Indication: METASTASES TO BONE
     Dosage: 4 MG, UNK
  2. ALFERON N [Concomitant]
  3. LEVOTHYROXINE SODIUM [Concomitant]
  4. PARACETAMOL [Concomitant]
  5. CETIRIZINE [Concomitant]

REACTIONS (3)
  - BONE OPERATION [None]
  - OSTEONECROSIS [None]
  - SEQUESTRECTOMY [None]
